FAERS Safety Report 9305407 (Version 1)
Quarter: 2013Q2

REPORT INFORMATION
  Report Type: Spontaneous
  Country: US (occurrence: US)
  Receive Date: 20130523
  Receipt Date: 20130523
  Transmission Date: 20140414
  Serious: Yes (Hospitalization)
  Sender: FDA-Public Use
  Company Number: US-BRISTOL-MYERS SQUIBB COMPANY-18723528

PATIENT
  Age: 77 Year
  Sex: Female
  Weight: 72.56 kg

DRUGS (11)
  1. COUMADIN [Suspect]
     Dates: end: 20130326
  2. LOSARTAN POTASSIUM [Interacting]
     Indication: ATRIAL FIBRILLATION
     Route: 048
     Dates: start: 20120211
  3. LOSARTAN POTASSIUM [Interacting]
     Indication: HYPERTENSION
     Route: 048
     Dates: start: 20120211
  4. SYNTHROID [Interacting]
  5. MULTAQ [Interacting]
     Dates: start: 20130312
  6. AMIODARONE [Suspect]
     Dates: end: 201303
  7. CENTRUM SILVER [Concomitant]
  8. FISH OIL [Concomitant]
  9. VITAMIN D3 [Concomitant]
  10. CRANBERRY [Concomitant]
  11. MAGNESIUM [Concomitant]

REACTIONS (7)
  - Supraventricular extrasystoles [Unknown]
  - Tricuspid valve incompetence [Unknown]
  - Dilatation atrial [Unknown]
  - Drug interaction [Unknown]
  - Tremor [Not Recovered/Not Resolved]
  - Feeling cold [Not Recovered/Not Resolved]
  - Visual acuity reduced [Unknown]
